FAERS Safety Report 8538926-X (Version None)
Quarter: 2012Q3

REPORT INFORMATION
  Report Type: 
  Country: None (occurrence: None)
  Receive Date: 20120716
  Receipt Date: 20120704
  Transmission Date: 20120928
  Serious: Yes (Other)
  Sender: FDA-Public Use
  Company Number: DSA_58353_2012

PATIENT
  Age: 63 Year
  Sex: Male

DRUGS (7)
  1. NEDAPLATIN (NEDAPLATIN) [Suspect]
     Dosage: 120 MG/M2 EVERY CYCLE
     Dates: start: 20110101
  2. FLUOROURACIL [Suspect]
     Indication: METASTASES TO LYMPH NODES
     Dosage: 800 MG/M2, 700 MG/M2)
     Dates: end: 20110101
  3. FLUOROURACIL [Suspect]
     Indication: OESOPHAGEAL SQUAMOUS CELL CARCINOMA
     Dosage: 800 MG/M2, 700 MG/M2)
     Dates: end: 20110101
  4. FLUOROURACIL [Suspect]
     Indication: METASTASES TO BONE
     Dosage: 800 MG/M2, 700 MG/M2)
     Dates: end: 20110101
  5. CISPLATIN [Suspect]
     Indication: OESOPHAGEAL SQUAMOUS CELL CARCINOMA
     Dosage: 80 MG/M2 EVERY CYCLE
  6. DOCETAXEL [Suspect]
     Indication: OESOPHAGEAL SQUAMOUS CELL CARCINOMA
     Dosage: 60 MG/M2
     Dates: start: 20110401
  7. THERAPEUTIC TRADIOPHARMACEUTICALS [Concomitant]

REACTIONS (7)
  - DEHYDRATION [None]
  - RENAL SALT-WASTING SYNDROME [None]
  - MALAISE [None]
  - INAPPROPRIATE ANTIDIURETIC HORMONE SECRETION [None]
  - DEPRESSED LEVEL OF CONSCIOUSNESS [None]
  - HYPONATRAEMIA [None]
  - SOMNOLENCE [None]
